FAERS Safety Report 8252184-5 (Version None)
Quarter: 2012Q2

REPORT INFORMATION
  Report Type: 
  Country: None (occurrence: None)
  Receive Date: 20120402
  Receipt Date: 20110419
  Transmission Date: 20120825
  Serious: No
  Sender: FDA-Public Use
  Company Number: US-ABBOTT-11P-163-0804462-00

PATIENT
  Sex: Male

DRUGS (5)
  1. TESTOSTERONE [Suspect]
     Dosage: DAILY DOSE: 7.5 GRAM(S)
     Route: 062
  2. LEVOTHYROXINE [Concomitant]
     Indication: PRODUCT USED FOR UNKNOWN INDICATION
     Dosage: DAILY DOSE:  UNKNOWN
     Route: 065
  3. TESTOSTERONE [Suspect]
     Indication: PRODUCT USED FOR UNKNOWN INDICATION
     Dosage: DAILY DOSE: 5 GRAM(S)
     Route: 062
     Dates: start: 20091101
  4. TESTOSTERONE [Suspect]
     Dosage: DAILY DOSE: 12.5 GRAM(S)
     Route: 062
  5. TESTOSTERONE [Suspect]
     Dosage: DAILY DOSE: 10 GRAM(S)
     Route: 062

REACTIONS (1)
  - BLOOD TESTOSTERONE ABNORMAL [None]
